FAERS Safety Report 8766974 (Version 1)
Quarter: 2012Q4

REPORT INFORMATION
  Report Type: 
  Country: CA (occurrence: CA)
  Receive Date: 20120904
  Receipt Date: 20120904
  Transmission Date: 20130627
  Serious: Yes (Other)
  Sender: FDA-Public Use
  Company Number: PHHY2012CA074036

PATIENT
  Age: 46 Year
  Sex: Male
  Weight: 111.4 kg

DRUGS (15)
  1. DEXAMETHASONE [Suspect]
     Indication: GLIOBLASTOMA MULTIFORME
     Dosage: 12 mg, UNK
  2. DEXAMETHASONE [Suspect]
     Dosage: 4 mg, UNK
  3. DEXAMETHASONE [Suspect]
     Dosage: 8 mg, UNK
  4. DEXAMETHASONE [Suspect]
     Dosage: 12 mg, UNK
  5. DEXAMETHASONE [Suspect]
     Dosage: 16 mg, UNK
  6. DEXAMETHASONE [Suspect]
     Dosage: 8 mg, UNK
  7. DEXAMETHASONE [Suspect]
     Dosage: 16 mg, UNK
  8. DEXAMETHASONE [Suspect]
     Dosage: 12 mg, UNK
     Route: 048
  9. DEXAMETHASONE [Suspect]
     Dosage: 2 mg, UNK
  10. DEXAMETHASONE [Suspect]
     Dosage: 4 mg, UNK
  11. TEMOZOLOMIDE [Suspect]
     Indication: GLIOBLASTOMA MULTIFORME
     Dosage: 150 mg/m2, UNK
  12. TEMOZOLOMIDE [Suspect]
     Dosage: 200 mg/m2, UNK
  13. TEMOZOLOMIDE [Suspect]
     Dosage: 150 mg/m2, UNK
  14. TEMOZOLOMIDE [Suspect]
     Dosage: 150 mg/m2, UNK
  15. TEMOZOLOMIDE [Suspect]
     Dosage: 75 mg/m2, UNK

REACTIONS (7)
  - Hepatic steatosis [Recovered/Resolved]
  - Confusional state [Recovered/Resolved]
  - Aphasia [Recovered/Resolved]
  - Headache [Recovered/Resolved]
  - Motor dysfunction [Recovered/Resolved]
  - Hyperglycaemia [Recovered/Resolved]
  - Transaminases increased [Recovered/Resolved]
